FAERS Safety Report 11693024 (Version 2)
Quarter: 2015Q4

REPORT INFORMATION
  Report Type: Spontaneous
  Country: IT (occurrence: IT)
  Receive Date: 20151103
  Receipt Date: 20151109
  Transmission Date: 20160304
  Serious: Yes (Hospitalization)
  Sender: FDA-Public Use
  Company Number: IT-INCYTE CORPORATION-2015IN005547

PATIENT
  Age: 68 Year
  Sex: Male

DRUGS (1)
  1. JAKAFI [Suspect]
     Active Substance: RUXOLITINIB
     Indication: MYELOFIBROSIS
     Dosage: 15 MG, BID
     Route: 065
     Dates: start: 20141220, end: 20150812

REACTIONS (26)
  - Faecal volume decreased [Unknown]
  - Faeces discoloured [Unknown]
  - Bone marrow myelogram abnormal [Unknown]
  - Diarrhoea [Recovered/Resolved]
  - Hernia [Unknown]
  - Intestinal congestion [Unknown]
  - Marrow hyperplasia [Unknown]
  - Abdominal pain [Recovered/Resolved]
  - Splenomegaly [Unknown]
  - Haemorrhoids [Unknown]
  - Large intestinal ulcer [Unknown]
  - Hyperpyrexia [Unknown]
  - General physical health deterioration [Unknown]
  - Colitis ulcerative [Unknown]
  - Gastric mucosal lesion [Unknown]
  - Nonspecific reaction [Unknown]
  - Blood pressure systolic increased [Unknown]
  - Abdominal pain upper [Unknown]
  - Gastrointestinal disorder [Unknown]
  - Large intestine erosion [Unknown]
  - Blood folate decreased [Unknown]
  - Rectal haemorrhage [Recovered/Resolved]
  - Myelodysplastic syndrome [Unknown]
  - Vitamin B12 increased [Unknown]
  - Blood creatinine increased [Unknown]
  - Haemoglobin decreased [Unknown]

NARRATIVE: CASE EVENT DATE: 20150811
